FAERS Safety Report 12850127 (Version 1)
Quarter: 2016Q4

REPORT INFORMATION
  Report Type: Spontaneous
  Country: US (occurrence: US)
  Receive Date: 20161014
  Receipt Date: 20161014
  Transmission Date: 20170207
  Serious: No
  Sender: FDA-Public Use
  Company Number: US-ROCHE-1793309

PATIENT
  Sex: Male

DRUGS (5)
  1. TYLENOL [Concomitant]
     Active Substance: ACETAMINOPHEN
  2. BABY ASPIRIN [Concomitant]
     Active Substance: ASPIRIN
  3. NAPROSYN [Concomitant]
     Active Substance: NAPROXEN
  4. ESBRIET [Suspect]
     Active Substance: PIRFENIDONE
     Indication: PRODUCT USED FOR UNKNOWN INDICATION
     Route: 048
  5. MELATONIN [Concomitant]
     Active Substance: MELATONIN

REACTIONS (1)
  - Gastric disorder [Unknown]
